FAERS Safety Report 5952255-X (Version None)
Quarter: 2008Q4

REPORT INFORMATION
  Report Type: 
  Country: None (occurrence: None)
  Receive Date: 20081113
  Receipt Date: 20081103
  Transmission Date: 20090506
  Serious: Yes (Other)
  Sender: FDA-Public Use
  Company Number: US-AVENTIS-200817600US

PATIENT
  Age: 41 Year
  Sex: Female

DRUGS (3)
  1. KETEK [Suspect]
     Dosage: DOSE: UNK
     Dates: start: 20051201, end: 20051201
  2. NASACORT [Concomitant]
     Dosage: DOSE: UNK
     Dates: start: 20051201
  3. ASTELIN                            /00884002/ [Concomitant]
     Dosage: DOSE: UNK
     Dates: start: 20051201

REACTIONS (14)
  - ABDOMINAL PAIN UPPER [None]
  - ALANINE AMINOTRANSFERASE INCREASED [None]
  - ANTIMITOCHONDRIAL ANTIBODY POSITIVE [None]
  - ARTHRALGIA [None]
  - ASPARTATE AMINOTRANSFERASE INCREASED [None]
  - ASTHENIA [None]
  - FATIGUE [None]
  - HEPATIC STEATOSIS [None]
  - HEPATITIS [None]
  - JAUNDICE [None]
  - MALAISE [None]
  - MYALGIA [None]
  - NAUSEA [None]
  - PRURITUS [None]
